FAERS Safety Report 7199021-8 (Version None)
Quarter: 2010Q4

REPORT INFORMATION
  Report Type: 
  Country: None (occurrence: None)
  Receive Date: 20101228
  Receipt Date: 20101215
  Transmission Date: 20110411
  Serious: No
  Sender: FDA-Public Use
  Company Number: US-BIOGENIDEC-2010BI035075

PATIENT
  Sex: Female

DRUGS (1)
  1. TYSABRI [Suspect]
     Indication: MULTIPLE SCLEROSIS
     Route: 042
     Dates: start: 20100401

REACTIONS (20)
  - CATHETER SITE PAIN [None]
  - COORDINATION ABNORMAL [None]
  - DERMATITIS CONTACT [None]
  - FATIGUE [None]
  - HEMIPARESIS [None]
  - INCISION SITE INFECTION [None]
  - INFUSION SITE PAIN [None]
  - INSOMNIA [None]
  - MEMORY IMPAIRMENT [None]
  - MULTIPLE SCLEROSIS RELAPSE [None]
  - MUSCLE SPASMS [None]
  - MUSCLE SPASTICITY [None]
  - OEDEMA PERIPHERAL [None]
  - POOR VENOUS ACCESS [None]
  - POST PROCEDURAL HAEMATOMA [None]
  - SPECIFIC GRAVITY URINE INCREASED [None]
  - SUTURE RELATED COMPLICATION [None]
  - VERTIGO [None]
  - WHITE BLOOD CELL COUNT ABNORMAL [None]
  - WOUND DEHISCENCE [None]
